FAERS Safety Report 4504218-9 (Version None)
Quarter: 2004Q4

REPORT INFORMATION
  Report Type: 
  Country: None (occurrence: None)
  Receive Date: 20041112
  Receipt Date: 20041104
  Transmission Date: 20050328
  Serious: Yes (Hospitalization)
  Sender: FDA-Public Use
  Company Number: 2003155315US

PATIENT
  Age: 64 Year
  Sex: Female
  Weight: 80.9 kg

DRUGS (3)
  1. CAMPTOSAR [Suspect]
     Indication: NON-SMALL CELL LUNG CANCER
     Dosage: MG/M2, DAYS 1 + 8 Q21D, IV
     Route: 042
     Dates: start: 20030321
  2. COMPARATOR-GEMCITABINE (GEMCITABINE) INJECTION [Suspect]
     Indication: NON-SMALL CELL LUNG CANCER
     Dosage: 1000 MG/M2, DAYS 1 + 8 Q21D, IV
     Route: 042
     Dates: start: 20030321
  3. BACTRIM DS [Concomitant]

REACTIONS (3)
  - COMPUTERISED TOMOGRAM ABNORMAL [None]
  - INFECTION [None]
  - SINUS DISORDER [None]
